FAERS Safety Report 15931950 (Version 1)
Quarter: 2019Q1

REPORT INFORMATION
  Report Type: Spontaneous
  Country: US (occurrence: US)
  Receive Date: 20190207
  Receipt Date: 20190207
  Transmission Date: 20190417
  Serious: Yes (Disabling)
  Sender: FDA-Public Use
  Company Number: None

PATIENT
  Age: 37 Year
  Sex: Female
  Weight: 58.97 kg

DRUGS (1)
  1. PARAGARD T 380A [Suspect]
     Active Substance: COPPER
     Dates: start: 20100131, end: 20190129

REACTIONS (10)
  - Mechanical urticaria [None]
  - Urticaria [None]
  - Fatigue [None]
  - Mental disorder [None]
  - Complication associated with device [None]
  - Metal poisoning [None]
  - Device material issue [None]
  - Palpitations [None]
  - Abdominal pain [None]
  - Pain [None]

NARRATIVE: CASE EVENT DATE: 20190129
